FAERS Safety Report 6265774-6 (Version None)
Quarter: 2009Q3

REPORT INFORMATION
  Report Type: 
  Country: None (occurrence: None)
  Receive Date: 20090709
  Receipt Date: 20090709
  Transmission Date: 20100115
  Serious: Yes (Hospitalization)
  Sender: FDA-Public Use
  Company Number: None

PATIENT
  Sex: Female
  Weight: 68.0396 kg

DRUGS (10)
  1. AVASTIN [Suspect]
     Indication: COLON CANCER
     Dates: start: 20090701, end: 20090701
  2. REGLAN [Concomitant]
  3. NYSTATIN [Concomitant]
  4. FOLFOX [Concomitant]
  5. PREMARIN [Concomitant]
  6. PROTONIX [Concomitant]
  7. TRILEPTAL [Concomitant]
  8. ACTIVAN [Concomitant]
  9. ZOFRAN [Concomitant]
  10. FENTANYL [Concomitant]

REACTIONS (16)
  - ASTHENIA [None]
  - AURA [None]
  - CONDITION AGGRAVATED [None]
  - CONVULSION [None]
  - EYE DISORDER [None]
  - FATIGUE [None]
  - LETHARGY [None]
  - LOSS OF CONSCIOUSNESS [None]
  - MALAISE [None]
  - MYOCLONUS [None]
  - NAUSEA [None]
  - NERVOUS SYSTEM DISORDER [None]
  - NEUROLOGICAL SYMPTOM [None]
  - STRESS [None]
  - VISION BLURRED [None]
  - VOMITING [None]
